FAERS Safety Report 23066556 (Version 1)
Quarter: 2023Q4

REPORT INFORMATION
  Report Type: Spontaneous
  Country: FR (occurrence: FR)
  Receive Date: 20231015
  Receipt Date: 20231015
  Transmission Date: 20240110
  Serious: Yes (Hospitalization)
  Sender: FDA-Public Use
  Company Number: None

PATIENT
  Age: 65 Year
  Sex: Male
  Weight: 67 kg

DRUGS (7)
  1. INFLIXIMAB [Suspect]
     Active Substance: INFLIXIMAB
     Indication: Autoimmune colitis
     Dosage: 335 MG, SINGLE
     Route: 042
     Dates: start: 20230821, end: 20230821
  2. LANSOPRAZOLE [Suspect]
     Active Substance: LANSOPRAZOLE
     Dosage: 30 MG, 1X/DAY
     Route: 048
     Dates: end: 20230919
  3. LORAZEPAM [Suspect]
     Active Substance: LORAZEPAM
     Indication: Mixed anxiety and depressive disorder
     Dosage: 1 MG, 1X/DAY
     Route: 048
     Dates: start: 202304, end: 20230918
  4. CARBAMAZEPINE [Suspect]
     Active Substance: CARBAMAZEPINE
     Indication: Neuralgia
     Dosage: 100 MG, 1X/DAY
     Route: 048
     Dates: start: 202304, end: 20230918
  5. FLUOXETINE [Suspect]
     Active Substance: FLUOXETINE HYDROCHLORIDE
     Dosage: 20 MG, 1X/DAY
     Route: 048
     Dates: start: 202308, end: 20230918
  6. KEYTRUDA [Suspect]
     Active Substance: PEMBROLIZUMAB
     Indication: Squamous cell carcinoma
     Dosage: 200 MG, CYCLIC
     Route: 042
     Dates: start: 20230414, end: 20230606
  7. CLOMIPRAMINE HYDROCHLORIDE [Suspect]
     Active Substance: CLOMIPRAMINE HYDROCHLORIDE
     Indication: Mixed anxiety and depressive disorder
     Dosage: 112.5 MG, 1X/DAY
     Route: 048
     Dates: start: 202308, end: 20230919

REACTIONS (1)
  - Hepatitis [Recovering/Resolving]

NARRATIVE: CASE EVENT DATE: 20230911
